FAERS Safety Report 7042771-4 (Version None)
Quarter: 2010Q4

REPORT INFORMATION
  Report Type: 
  Country: None (occurrence: None)
  Receive Date: 20101013
  Receipt Date: 20100422
  Transmission Date: 20110411
  Serious: No
  Sender: FDA-Public Use
  Company Number: US-ASTRAZENECA-2010SE17615

PATIENT
  Age: 23 Year
  Sex: Male

DRUGS (1)
  1. SYMBICORT [Suspect]
     Indication: ASTHMA
     Dosage: 160/ 4.5, 640 MCG
     Route: 055
     Dates: start: 20100414, end: 20100420

REACTIONS (3)
  - CHEST PAIN [None]
  - DIZZINESS [None]
  - PALPITATIONS [None]
